FAERS Safety Report 5486457-6 (Version None)
Quarter: 2007Q4

REPORT INFORMATION
  Report Type: 
  Country: None (occurrence: None)
  Receive Date: 20071016
  Receipt Date: 20071010
  Transmission Date: 20080405
  Serious: Yes (Hospitalization)
  Sender: FDA-Public Use
  Company Number: A0687611A

PATIENT
  Sex: Female

DRUGS (2)
  1. REQUIP [Suspect]
     Route: 048
     Dates: start: 20030901
  2. CONCURRENT MEDICATIONS [Concomitant]

REACTIONS (4)
  - ANEURYSM [None]
  - INTERVERTEBRAL DISC OPERATION [None]
  - OBSTRUCTION [None]
  - TRANSIENT ISCHAEMIC ATTACK [None]
